FAERS Safety Report 11939864 (Version 3)
Quarter: 2016Q1

REPORT INFORMATION
  Report Type: Report from Study
  Country: ES (occurrence: ES)
  Receive Date: 20160122
  Receipt Date: 20160318
  Transmission Date: 20160526
  Serious: Yes (Hospitalization, Other)
  Sender: FDA-Public Use
  Company Number: ES-BIOGEN-2015BI097419

PATIENT
  Sex: Female
  Weight: 67 kg

DRUGS (9)
  1. BIIB033 [Suspect]
     Active Substance: OPICINUMAB
     Route: 042
     Dates: start: 20150812
  2. CALCIUM GLUCONATE. [Concomitant]
     Active Substance: CALCIUM GLUCONATE
     Indication: PROPHYLAXIS
     Dates: start: 20110317
  3. BACLOFEN. [Concomitant]
     Active Substance: BACLOFEN
     Indication: MULTIPLE SCLEROSIS
     Dates: start: 20130411
  4. AMANTADINE [Concomitant]
     Active Substance: AMANTADINE
     Indication: MULTIPLE SCLEROSIS
     Dates: start: 20080411
  5. BETAHISTINE [Concomitant]
     Active Substance: BETAHISTINE
     Indication: MULTIPLE SCLEROSIS
     Dates: start: 20121227
  6. DIAZEPAM. [Concomitant]
     Active Substance: DIAZEPAM
     Indication: DEPRESSION
     Dates: start: 1999
  7. BIIB033 [Suspect]
     Active Substance: OPICINUMAB
     Indication: MULTIPLE SCLEROSIS
     Route: 042
     Dates: start: 20140521, end: 20150515
  8. AUXINA E [Concomitant]
     Indication: PROPHYLAXIS
     Dates: start: 20030905
  9. AVONEX [Concomitant]
     Active Substance: INTERFERON BETA-1A
     Indication: MULTIPLE SCLEROSIS
     Route: 030
     Dates: start: 20140521

REACTIONS (1)
  - Thyroid adenoma [Recovered/Resolved with Sequelae]

NARRATIVE: CASE EVENT DATE: 20150708
